FAERS Safety Report 12450855 (Version 2)
Quarter: 2016Q3

REPORT INFORMATION
  Report Type: Report from Study
  Country: US (occurrence: US)
  Receive Date: 20160609
  Receipt Date: 20160711
  Transmission Date: 20161109
  Serious: No
  Sender: FDA-Public Use
  Company Number: US-SUCAMPO PHARMACEUTICALS, INC.-SPI201600410

PATIENT
  Age: 11 Year
  Sex: Female
  Weight: 47.62 kg

DRUGS (3)
  1. LUBIPROSTONE [Suspect]
     Active Substance: LUBIPROSTONE
     Indication: CONSTIPATION
     Dosage: 24 MCG, BID
     Route: 048
     Dates: start: 20160407, end: 20160501
  2. CETRIZINE [Concomitant]
     Active Substance: CETIRIZINE HYDROCHLORIDE
     Indication: RHINITIS ALLERGIC
     Dosage: 10 MG, PRN
     Route: 048
     Dates: start: 20160331
  3. PROAIR HFA [Concomitant]
     Active Substance: ALBUTEROL SULFATE
     Indication: ASTHMA
     Dosage: 108 MCG, PRN
     Dates: start: 20140212

REACTIONS (1)
  - Anaphylactoid reaction [Recovered/Resolved]

NARRATIVE: CASE EVENT DATE: 20160502
